FAERS Safety Report 20485126 (Version 1)
Quarter: 2022Q1

REPORT INFORMATION
  Report Type: Spontaneous
  Country: US (occurrence: US)
  Receive Date: 20220217
  Receipt Date: 20220217
  Transmission Date: 20220424
  Serious: Yes (Other)
  Sender: FDA-Public Use
  Company Number: US-SA-SAC20220213000032

PATIENT
  Age: 66 Year
  Sex: Male

DRUGS (1)
  1. ZANTAC [Suspect]
     Active Substance: RANITIDINE HYDROCHLORIDE
     Indication: Gastrooesophageal reflux disease
     Dosage: 75 MG UNK
     Dates: start: 201501, end: 202003

REACTIONS (2)
  - Renal cancer stage I [Unknown]
  - Prostate cancer stage I [Unknown]

NARRATIVE: CASE EVENT DATE: 20180101
